FAERS Safety Report 23798367 (Version 1)
Quarter: 2024Q2

REPORT INFORMATION
  Report Type: Spontaneous
  Country: RO (occurrence: RO)
  Receive Date: 20240430
  Receipt Date: 20240430
  Transmission Date: 20240716
  Serious: Yes (Hospitalization, Other)
  Sender: FDA-Public Use
  Company Number: RO-AMGEN-ROUSP2024082101

PATIENT
  Age: 37 Year
  Sex: Male

DRUGS (7)
  1. VECTIBIX [Suspect]
     Active Substance: PANITUMUMAB
     Indication: Colorectal cancer metastatic
     Dosage: 6 MILLIGRAM/KILOGRAM, CYCLICAL
     Route: 042
     Dates: start: 20210310, end: 20210630
  2. VECTIBIX [Suspect]
     Active Substance: PANITUMUMAB
     Dosage: UNK, 80% OF THE DOSE,CYCLICAL
     Route: 042
     Dates: start: 20210728, end: 20210811
  3. VECTIBIX [Suspect]
     Active Substance: PANITUMUMAB
     Dosage: UNK, 60% OF THE DOSE, CYCLICAL
     Route: 042
     Dates: start: 20210908, end: 20211208
  4. FLUOROURACIL [Concomitant]
     Active Substance: FLUOROURACIL
     Indication: Colorectal cancer metastatic
     Dosage: UNK, CYCLICAL
     Route: 042
     Dates: start: 20210310
  5. OXALIPLATIN [Concomitant]
     Active Substance: OXALIPLATIN
     Indication: Colorectal cancer metastatic
     Dosage: UNK, CYCLICAL
     Route: 042
     Dates: start: 20210124
  6. LEUCOVORIN [Concomitant]
     Active Substance: LEUCOVORIN\LEUCOVORIN CALCIUM
     Indication: Colorectal cancer metastatic
     Dosage: UNK, CYCLICAL
     Route: 042
     Dates: start: 20210124
  7. DOXYCYCLINE [Concomitant]
     Active Substance: DOXYCYCLINE
     Indication: Prophylaxis
     Dosage: 100 MILLIGRAM
     Route: 048

REACTIONS (19)
  - Bacterial infection [Unknown]
  - Neurotoxicity [Unknown]
  - Metastases to peritoneum [Unknown]
  - Liver disorder [Unknown]
  - Tumour marker increased [Unknown]
  - Intestinal transit time abnormal [Unknown]
  - Dysuria [Unknown]
  - Pollakiuria [Unknown]
  - Colostomy [Unknown]
  - Fibromyalgia [Unknown]
  - Arthralgia [Unknown]
  - Herpes dermatitis [Unknown]
  - Decreased appetite [Unknown]
  - Weight decreased [Unknown]
  - Cough [Unknown]
  - Pyrexia [Unknown]
  - Constipation [Unknown]
  - Chills [Unknown]
  - Skin toxicity [Unknown]

NARRATIVE: CASE EVENT DATE: 20210630
